FAERS Safety Report 20240331 (Version 2)
Quarter: 2022Q1

REPORT INFORMATION
  Report Type: Spontaneous
  Country: JP (occurrence: JP)
  Receive Date: 20211228
  Receipt Date: 20220125
  Transmission Date: 20220424
  Serious: Yes (Other)
  Sender: FDA-Public Use
  Company Number: JP-PFIZER INC-202101816121

PATIENT
  Age: 69 Year
  Sex: Male
  Weight: 43 kg

DRUGS (6)
  1. MEROPENEM [Suspect]
     Active Substance: MEROPENEM
     Indication: Pneumonia bacterial
     Dosage: 0.5 G, 3X/DAY
     Route: 042
     Dates: start: 20210820, end: 20210820
  2. MIRABEGRON [Concomitant]
     Active Substance: MIRABEGRON
     Dosage: UNK
  3. ATARAX-P [HYDROXYZINE EMBONATE] [Concomitant]
     Dosage: UNK
  4. SODIUM GUALENATE [Concomitant]
     Active Substance: SODIUM GUALENATE
     Dosage: UNK
  5. MARZULENE [AZULENE SODIUM SULFONATE;LEVOGLUTAMIDE] [Concomitant]
     Dosage: UNK
  6. DEQUALINIUM CHLORIDE [Concomitant]
     Active Substance: DEQUALINIUM CHLORIDE
     Dosage: UNK

REACTIONS (2)
  - Rash papular [Recovered/Resolved]
  - Erythema [Recovered/Resolved]

NARRATIVE: CASE EVENT DATE: 20210820
